FAERS Safety Report 6342148-0 (Version None)
Quarter: 2009Q3

REPORT INFORMATION
  Report Type: 
  Country: None (occurrence: None)
  Receive Date: 20090903
  Receipt Date: 20090903
  Transmission Date: 20100115
  Serious: No
  Sender: FDA-Public Use
  Company Number: None

PATIENT
  Sex: Female
  Weight: 64.4108 kg

DRUGS (1)
  1. FORTICAL [Suspect]
     Indication: OSTEOPOROSIS
     Dosage: 1 SPRAY ALTERNATE NOSTRIL EVEY DAY
     Dates: start: 20090502, end: 20090817

REACTIONS (1)
  - SKIN ODOUR ABNORMAL [None]
